FAERS Safety Report 9332654 (Version 2)
Quarter: 2013Q3

REPORT INFORMATION
  Report Type: Spontaneous
  Country: PK (occurrence: PK)
  Receive Date: 20130606
  Receipt Date: 20130710
  Transmission Date: 20140515
  Serious: Yes (Death, Other)
  Sender: FDA-Public Use
  Company Number: PK-CELGENEUS-124-21880-13054809

PATIENT
  Sex: Male

DRUGS (2)
  1. REVLIMID [Suspect]
     Indication: REFRACTORY ANAEMIA WITH AN EXCESS OF BLASTS
     Dosage: 40 MILLIGRAM
     Route: 048
     Dates: start: 20110302, end: 20110504
  2. THALIX [Concomitant]
     Indication: REFRACTORY ANAEMIA WITH AN EXCESS OF BLASTS
     Dosage: 100 MILLIGRAM
     Route: 048
     Dates: start: 20090423, end: 20110228

REACTIONS (2)
  - Myocardial infarction [Fatal]
  - Pancytopenia [Unknown]
